FAERS Safety Report 22872971 (Version 2)
Quarter: 2023Q4

REPORT INFORMATION
  Report Type: Spontaneous
  Country: JP (occurrence: JP)
  Receive Date: 20230828
  Receipt Date: 20231108
  Transmission Date: 20240110
  Serious: Yes (Other)
  Sender: FDA-Public Use
  Company Number: JP-PFIZER INC-202300284914

PATIENT
  Age: 82 Year
  Sex: Male

DRUGS (2)
  1. MEROPENEM [Suspect]
     Active Substance: MEROPENEM
     Indication: Brain abscess
     Dosage: 2 G, DAILY
  2. MEROPENEM [Suspect]
     Active Substance: MEROPENEM
     Indication: Sinusitis

REACTIONS (1)
  - Pseudomembranous colitis [Unknown]
